FAERS Safety Report 6685920-X (Version None)
Quarter: 2010Q2

REPORT INFORMATION
  Report Type: 
  Country: None (occurrence: None)
  Receive Date: 20100419
  Receipt Date: 20100323
  Transmission Date: 20101027
  Serious: No
  Sender: FDA-Public Use
  Company Number: US-BAYER-201013464BCC

PATIENT
  Age: 22 Year
  Sex: Female
  Weight: 91 kg

DRUGS (1)
  1. ALEVE (CAPLET) [Suspect]
     Indication: MALAISE
     Dosage: TOTAL DAILY DOSE: 1540 MG  UNIT DOSE: 220 MG
     Route: 048
     Dates: start: 20100319

REACTIONS (2)
  - FEELING DRUNK [None]
  - VOMITING [None]
